FAERS Safety Report 5023037-0 (Version None)
Quarter: 2006Q2

REPORT INFORMATION
  Report Type: 
  Country: None (occurrence: None)
  Receive Date: 20060426
  Receipt Date: 20060329
  Transmission Date: 20061013
  Serious: Yes (Other)
  Sender: FDA-Public Use
  Company Number: 2006044249

PATIENT

DRUGS (4)
  1. LYRICA [Suspect]
     Indication: NEURALGIA
     Dosage: 100 MG (100 MG,1 IN 1 D)
  2. METHADONE HCL [Concomitant]
  3. BACLOFEN [Concomitant]
  4. ZANAFLEX [Concomitant]

REACTIONS (1)
  - DELUSION [None]
